FAERS Safety Report 9743272 (Version 2)
Quarter: 2013Q4

REPORT INFORMATION
  Report Type: Spontaneous
  Country: US (occurrence: US)
  Receive Date: 20131210
  Receipt Date: 20131210
  Transmission Date: 20140711
  Serious: No
  Sender: FDA-Public Use
  Company Number: US-GILEAD-2009-0025195

PATIENT
  Sex: Male
  Weight: 84.37 kg

DRUGS (19)
  1. LETAIRIS [Suspect]
     Indication: PULMONARY ARTERIAL HYPERTENSION
     Route: 048
     Dates: start: 20091008
  2. SIMVASTATIN [Concomitant]
  3. SOTALOL [Concomitant]
  4. PRINIVIL [Concomitant]
  5. METOPROLOL [Concomitant]
  6. LISINOPRIL [Concomitant]
  7. LASIX [Concomitant]
  8. AMIODARONE [Concomitant]
  9. COUMADIN [Concomitant]
  10. ASPIRIN [Concomitant]
  11. ATROVENT [Concomitant]
  12. ALBUTEROL [Concomitant]
  13. ACETAMINOPHEN [Concomitant]
  14. TYLENOL #3 [Concomitant]
  15. NEXIUM [Concomitant]
  16. ZOLPIDEM [Concomitant]
  17. MULTIVITAMIN [Concomitant]
  18. POTASSIUM CHLORIDE [Concomitant]
  19. MAGNESIUM OXIDE [Concomitant]

REACTIONS (1)
  - Liver function test abnormal [Unknown]
